FAERS Safety Report 13739063 (Version 2)
Quarter: 2018Q2

REPORT INFORMATION
  Report Type: Report from Study
  Country: US (occurrence: US)
  Receive Date: 20170710
  Receipt Date: 20180504
  Transmission Date: 20180711
  Serious: Yes (Hospitalization, Other)
  Sender: FDA-Public Use
  Company Number: US-SAOL THERAPEUTICS-2017SAO00859

PATIENT
  Age: 58 Year
  Sex: Male

DRUGS (64)
  1. COMPOUNDED BACLOFEN [Suspect]
     Active Substance: BACLOFEN
     Dosage: 342.75 ?G, \DAY - MAX
     Dates: start: 20170627, end: 20170629
  2. COMPOUNDED BACLOFEN [Suspect]
     Active Substance: BACLOFEN
     Dosage: 613.35 ?G, \DAY -MAX
     Route: 037
     Dates: start: 20171207, end: 20180214
  3. COMPOUNDED BACLOFEN [Suspect]
     Active Substance: BACLOFEN
     Dosage: 742.82 ?G, \DAY; MAX
     Dates: start: 20180214
  4. MORPHINE [Suspect]
     Active Substance: MORPHINE
     Dosage: 4.5129 MG, \DAY - MAX
     Route: 037
     Dates: start: 20170502, end: 20170525
  5. MORPHINE [Suspect]
     Active Substance: MORPHINE
     Dosage: 4.4447 MG, \DAY - MAX
     Route: 037
     Dates: start: 20170525
  6. MORPHINE [Suspect]
     Active Substance: MORPHINE
     Dosage: 3.0011 MG, \DAY
     Dates: start: 20180214
  7. BUPIVACAINE. [Suspect]
     Active Substance: BUPIVACAINE
     Dosage: 19.843 MG, \DAY
     Route: 037
     Dates: start: 20180502
  8. BUPIVACAINE. [Suspect]
     Active Substance: BUPIVACAINE
     Dosage: 27.077 MG, \DAY - MAX
     Route: 037
     Dates: start: 20170502, end: 20180525
  9. BUPIVACAINE. [Suspect]
     Active Substance: BUPIVACAINE
     Dosage: 15.006 MG, \DAY
     Dates: start: 20170906, end: 20171207
  10. COMPOUNDED BACLOFEN [Suspect]
     Active Substance: BACLOFEN
     Dosage: 342.75 ?G, \DAY
     Route: 037
  11. COMPOUNDED BACLOFEN [Suspect]
     Active Substance: BACLOFEN
     Dosage: 395.08 ?G, \DAY; MAX
     Route: 037
     Dates: start: 20170629, end: 20170906
  12. COMPOUNDED BACLOFEN [Suspect]
     Active Substance: BACLOFEN
     Dosage: 416.02 ?G, \DAY
     Route: 037
     Dates: start: 20171207, end: 20180214
  13. BUPIVACAINE. [Suspect]
     Active Substance: BUPIVACAINE
     Dosage: 24.108 MG, \DAY
     Route: 037
     Dates: start: 20160920, end: 20161103
  14. FENTANYL. [Suspect]
     Active Substance: FENTANYL
     Dosage: 149.91 ?G, \DAY
     Route: 037
     Dates: start: 20170629, end: 20170906
  15. FENTANYL. [Suspect]
     Active Substance: FENTANYL
     Dosage: 463.11 ?G, \DAY; MAX
     Dates: start: 20170906, end: 20171207
  16. COMPOUNDED BACLOFEN [Suspect]
     Active Substance: BACLOFEN
     Dosage: 80.36 ?G, \DAY
     Route: 037
     Dates: start: 20160920, end: 20161103
  17. COMPOUNDED BACLOFEN [Suspect]
     Active Substance: BACLOFEN
     Dosage: 133.16 ?G, \DAY
     Route: 037
     Dates: start: 20170406
  18. MORPHINE [Suspect]
     Active Substance: MORPHINE
     Dosage: 2.5009 MG, \DAY
     Route: 037
     Dates: start: 20160920, end: 20161103
  19. MORPHINE [Suspect]
     Active Substance: MORPHINE
     Dosage: 4.527 MG, \DAY
     Route: 037
     Dates: start: 20170309, end: 20170406
  20. MORPHINE [Suspect]
     Active Substance: MORPHINE
     Dosage: 3.3072 MG, \DAY
     Route: 037
     Dates: start: 20170502
  21. MORPHINE [Suspect]
     Active Substance: MORPHINE
     Dosage: UNK
  22. BUPIVACAINE. [Suspect]
     Active Substance: BUPIVACAINE
     Dosage: 27.437 MG, \DAY
     Route: 037
     Dates: start: 20170309, end: 20170406
  23. BUPIVACAINE. [Suspect]
     Active Substance: BUPIVACAINE
     Dosage: 23.156 MG, \DAY- MAX
     Dates: start: 20170906, end: 20171207
  24. BUPIVACAINE. [Suspect]
     Active Substance: BUPIVACAINE
     Dosage: 20.801 MG, \DAY
     Route: 037
     Dates: start: 20171207, end: 20180214
  25. FENTANYL. [Suspect]
     Active Substance: FENTANYL
     Dosage: 214.22 ?G, \DAY - MAX
     Route: 037
     Dates: start: 20170627, end: 20170629
  26. FENTANYL. [Suspect]
     Active Substance: FENTANYL
     Dosage: 246.92 ?G, \DAY
     Route: 037
     Dates: start: 20170629, end: 20170906
  27. FENTANYL. [Suspect]
     Active Substance: FENTANYL
     Dosage: 300.11 ?G, \DAY
     Dates: start: 20170906, end: 20171207
  28. FENTANYL. [Suspect]
     Active Substance: FENTANYL
     Dosage: 416.02 ?G, \DAY
     Route: 037
     Dates: start: 20171207
  29. FENTANYL. [Suspect]
     Active Substance: FENTANYL
     Dosage: 24.968 ?G, \DAY
     Route: 037
     Dates: start: 20170406
  30. COMPOUNDED BACLOFEN [Suspect]
     Active Substance: BACLOFEN
     Dosage: 50.02 ?G, \DAY
     Route: 037
     Dates: start: 20160920, end: 20161103
  31. COMPOUNDED BACLOFEN [Suspect]
     Active Substance: BACLOFEN
     Dosage: 199.74 ?G, \DAY
     Route: 037
  32. MORPHINE [Suspect]
     Active Substance: MORPHINE
     Dosage: 4.6426 MG, \DAY; MAX
     Dates: start: 20180214
  33. BUPIVACAINE. [Suspect]
     Active Substance: BUPIVACAINE
     Dosage: 9.987 MG, \DAY
     Route: 037
     Dates: start: 20170406
  34. COMPOUNDED BACLOFEN [Suspect]
     Active Substance: BACLOFEN
     Dosage: 541.55 ?G, \DAY - MAX
     Route: 037
     Dates: start: 20170502, end: 20170525
  35. BUPIVACAINE. [Suspect]
     Active Substance: BUPIVACAINE
     Dosage: 15.006 MG, \DAY
     Route: 037
     Dates: start: 20160920, end: 20161103
  36. BUPIVACAINE. [Suspect]
     Active Substance: BUPIVACAINE
     Dosage: 18.391 MG, \DAY
     Route: 037
     Dates: start: 20170309, end: 20170406
  37. BUPIVACAINE. [Suspect]
     Active Substance: BUPIVACAINE
     Dosage: 11.993 MG, \DAY
     Dates: start: 20170629, end: 20170906
  38. BUPIVACAINE. [Suspect]
     Active Substance: BUPIVACAINE
     Dosage: 30.668 MG, \DAY - MAX
     Route: 037
     Dates: start: 20171207, end: 20180214
  39. FENTANYL. [Suspect]
     Active Substance: FENTANYL
     Dosage: 50.005 ?G, \DAY
     Route: 037
     Dates: start: 20170406
  40. COMPOUNDED BACLOFEN [Suspect]
     Active Substance: BACLOFEN
     Dosage: 137.19 ?G, \DAY
     Route: 037
     Dates: start: 20170309, end: 20170406
  41. COMPOUNDED BACLOFEN [Suspect]
     Active Substance: BACLOFEN
     Dosage: 533.36 ?G, \DAY- MAX
     Route: 037
     Dates: start: 20170525, end: 20170627
  42. COMPOUNDED BACLOFEN [Suspect]
     Active Substance: BACLOFEN
     Dosage: 199.74 ?G, \DAY
     Dates: start: 20170627, end: 20170629
  43. COMPOUNDED BACLOFEN [Suspect]
     Active Substance: BACLOFEN
     Dosage: 463.11 ?G, \DAY; MAX
     Dates: start: 20170906, end: 20171207
  44. COMPOUNDED BACLOFEN [Suspect]
     Active Substance: BACLOFEN
     Dosage: 480.18 ?G, \DAY
     Route: 037
     Dates: start: 20180214
  45. MORPHINE [Suspect]
     Active Substance: MORPHINE
     Dosage: 4.018 MG, \DAY
     Route: 037
     Dates: start: 20160920, end: 20161103
  46. BUPIVACAINE. [Suspect]
     Active Substance: BUPIVACAINE
     Dosage: 20.02 MG, \DAY
     Route: 037
     Dates: start: 20170406
  47. BUPIVACAINE. [Suspect]
     Active Substance: BUPIVACAINE
     Dosage: 17.138 MG, \DAY; MAX
     Route: 037
     Dates: start: 20170627
  48. BUPIVACAINE. [Suspect]
     Active Substance: BUPIVACAINE
     Dosage: 11.993 MG, \DAY
     Route: 037
     Dates: start: 20170629
  49. BUPIVACAINE. [Suspect]
     Active Substance: BUPIVACAINE
     Dosage: 9.987 MG, \DAY
     Dates: start: 20170627, end: 20170629
  50. BUPIVACAINE. [Suspect]
     Active Substance: BUPIVACAINE
     Dosage: 17.138 MG, \DAY - MAX
     Dates: start: 20170627, end: 20170629
  51. BUPIVACAINE. [Suspect]
     Active Substance: BUPIVACAINE
     Dosage: 18.007 MG, \DAY
     Dates: start: 20180214
  52. BUPIVACAINE. [Suspect]
     Active Substance: BUPIVACAINE
     Dosage: 27.856 MG, \DAY; MAX
     Dates: start: 20180214
  53. COMPOUNDED BACLOFEN [Suspect]
     Active Substance: BACLOFEN
     Dosage: 91.96 ?G, \DAY
     Route: 037
     Dates: start: 20170309, end: 20170406
  54. COMPOUNDED BACLOFEN [Suspect]
     Active Substance: BACLOFEN
     Dosage: 300.11 ?G, \DAY
     Dates: start: 20170906, end: 20171207
  55. MORPHINE [Suspect]
     Active Substance: MORPHINE
     Dosage: 3.0652 MG, \DAY
     Route: 037
     Dates: start: 20170309, end: 20170406
  56. BUPIVACAINE. [Suspect]
     Active Substance: BUPIVACAINE
     Dosage: 26.668 MG, \DAY - MAX
     Route: 037
     Dates: start: 20170525
  57. BUPIVACAINE. [Suspect]
     Active Substance: BUPIVACAINE
     Dosage: 19.754 MG, \DAY; MAX
     Dates: start: 20170629, end: 20170906
  58. FENTANYL. [Suspect]
     Active Substance: FENTANYL
     Dosage: 124.84 ?G, \DAY
     Route: 037
     Dates: start: 20170627, end: 20170629
  59. FENTANYL. [Suspect]
     Active Substance: FENTANYL
     Dosage: 613.35 ?G, \DAY - MAX
     Route: 037
     Dates: start: 20171207
  60. COMPOUNDED BACLOFEN [Suspect]
     Active Substance: BACLOFEN
     Dosage: 266.69 ?G, \DAY
     Route: 037
     Dates: start: 20170406
  61. COMPOUNDED BACLOFEN [Suspect]
     Active Substance: BACLOFEN
     Dosage: 396.86 ?G, \DAY
     Route: 037
     Dates: start: 20170502, end: 20170627
  62. COMPOUNDED BACLOFEN [Suspect]
     Active Substance: BACLOFEN
     Dosage: 239.85 ?G, \DAY
     Route: 037
     Dates: start: 20170629, end: 20170906
  63. BUPIVACAINE. [Suspect]
     Active Substance: BUPIVACAINE
     Dosage: 9.987 MG, \DAY
     Route: 037
     Dates: start: 20170627
  64. BUPIVACAINE. [Suspect]
     Active Substance: BUPIVACAINE
     Dosage: 19.754 MG, \DAY; MAX
     Route: 037
     Dates: start: 20170629

REACTIONS (17)
  - Vomiting [Recovered/Resolved]
  - Gallbladder enlargement [Unknown]
  - Somnolence [Recovered/Resolved]
  - Therapeutic product ineffective for unapproved indication [Recovered/Resolved]
  - Fatigue [Recovered/Resolved]
  - Paraesthesia [Recovered/Resolved]
  - Device issue [Recovered/Resolved]
  - Splenomegaly [Unknown]
  - Pain [Recovered/Resolved]
  - Drug withdrawal syndrome [Recovered/Resolved]
  - Hypoaesthesia [Recovered/Resolved]
  - Catheter site pain [Recovered/Resolved]
  - Nausea [Recovered/Resolved]
  - Implant site pain [Recovered/Resolved]
  - Dizziness [Not Recovered/Not Resolved]
  - Diarrhoea [Recovered/Resolved]
  - Tremor [Recovered/Resolved]

NARRATIVE: CASE EVENT DATE: 20161103
